FAERS Safety Report 21304885 (Version 1)
Quarter: 2022Q3

REPORT INFORMATION
  Report Type: Spontaneous
  Country: US (occurrence: US)
  Receive Date: 20220907
  Receipt Date: 20220907
  Transmission Date: 20221027
  Serious: No
  Sender: FDA-Public Use
  Company Number: US-3M-2022-US-012371

PATIENT
  Age: 66 Year
  Sex: Male
  Weight: 64.86 kg

DRUGS (4)
  1. PERIDEX [Suspect]
     Active Substance: CHLORHEXIDINE GLUCONATE
     Indication: Prophylaxis
     Dosage: TWICE PER DAY AS DIRECTED
     Route: 048
     Dates: start: 20220502, end: 20220511
  2. VITAMIN D [Concomitant]
     Active Substance: VITAMIN D NOS
  3. HERBALS\SAW PALMETTO [Concomitant]
     Active Substance: HERBALS\SAW PALMETTO
  4. VITAMINS [Concomitant]
     Active Substance: VITAMINS

REACTIONS (3)
  - Product after taste [Recovering/Resolving]
  - Dysgeusia [Recovering/Resolving]
  - Taste disorder [Recovering/Resolving]

NARRATIVE: CASE EVENT DATE: 20220502
